FAERS Safety Report 17523111 (Version 13)
Quarter: 2022Q2

REPORT INFORMATION
  Report Type: Spontaneous
  Country: GB (occurrence: GB)
  Receive Date: 20200311
  Receipt Date: 20220427
  Transmission Date: 20220720
  Serious: Yes (Life-Threatening, Hospitalization, Disabling, Congenital Anomaly, Other)
  Sender: FDA-Public Use
  Company Number: GB-MHRA-MIDB-3C334CEE-3E1E-4AF0-9C80-7E7BA9C94C29

PATIENT
  Age: 50 Year
  Sex: Female
  Weight: 60.6 kg

DRUGS (18)
  1. VENLAFAXINE [Suspect]
     Active Substance: VENLAFAXINE HYDROCHLORIDE
     Indication: Depression
     Dosage: 150 MILLIGRAM, ONCE A DAY (QD, DISCONTINUED THEN REINTRODUCED AT REDUCED DOSE ON PSYCHIATRY ADVICE )
     Route: 048
     Dates: start: 2015
  2. VENLAFAXINE [Suspect]
     Active Substance: VENLAFAXINE HYDROCHLORIDE
     Dosage: 75 MILLIGRAM, ONCE A DAY (QD, DISCONTINUED THEN REINTRODUCED AT REDUCED DOSE ON PSYCHIATRY ADVICE )
     Route: 048
  3. VENLAFAXINE [Suspect]
     Active Substance: VENLAFAXINE HYDROCHLORIDE
     Indication: Depression
     Dosage: 75 MILLIGRAM, ONCE A DAY
     Route: 048
     Dates: start: 2015
  4. VENLAFAXINE [Suspect]
     Active Substance: VENLAFAXINE HYDROCHLORIDE
     Indication: Anxiety
     Dosage: 150 MILLIGRAM, ONCE A DAY
     Route: 048
  5. VENLAFAXINE [Suspect]
     Active Substance: VENLAFAXINE HYDROCHLORIDE
     Dosage: 150 MILLIGRAM, TWO TIMES A DAY
     Route: 048
     Dates: start: 2015
  6. VENLAFAXINE [Suspect]
     Active Substance: VENLAFAXINE HYDROCHLORIDE
     Indication: Anxiety
     Dosage: 15 MILLIGRAM, ONCE A DAY
     Route: 048
     Dates: start: 2015
  7. VENLAFAXINE [Suspect]
     Active Substance: VENLAFAXINE HYDROCHLORIDE
     Indication: Depression
     Dosage: 75 MILLIGRAM, ONCE A DAY
     Route: 048
  8. EFFEXOR [Suspect]
     Active Substance: VENLAFAXINE HYDROCHLORIDE
     Indication: Depression
     Dosage: UNK
     Route: 065
  9. EFFEXOR [Suspect]
     Active Substance: VENLAFAXINE HYDROCHLORIDE
     Indication: Anxiety
  10. BALSALAZIDE [Suspect]
     Active Substance: BALSALAZIDE
     Indication: Colitis ulcerative
     Dosage: 2.25 G, 1X/DAY (3 CAPSULES ONCE DAILY)
     Route: 048
     Dates: start: 2008, end: 20200115
  11. BALSALAZIDE [Suspect]
     Active Substance: BALSALAZIDE
     Dosage: 2250 MILLIGRAM, ONCE A DAY
     Route: 048
  12. BALSALAZIDE [Suspect]
     Active Substance: BALSALAZIDE
     Dosage: 3 CAPSULES ONCE DAILY
     Route: 048
  13. BALSALAZIDE [Suspect]
     Active Substance: BALSALAZIDE
     Dosage: 75 MILLIGRAM, ONCE A DAY
     Route: 065
     Dates: start: 2008
  14. BALSALAZIDE [Suspect]
     Active Substance: BALSALAZIDE
     Indication: Colitis ulcerative
     Dosage: 75 MILLIGRAM (750 MG, 3 TABS IN THE MORNING)
     Route: 048
     Dates: start: 2008, end: 20200115
  15. BALSALAZIDE DISODIUM [Suspect]
     Active Substance: BALSALAZIDE DISODIUM
     Indication: Colitis ulcerative
     Dosage: 2.25 GRAM, ONCE A DAY
     Route: 048
  16. BALSALAZIDE DISODIUM [Suspect]
     Active Substance: BALSALAZIDE DISODIUM
     Dosage: 750 MILLIGRAM
     Route: 048
     Dates: start: 2008, end: 20200115
  17. BALSALAZIDE DISODIUM [Concomitant]
     Active Substance: BALSALAZIDE DISODIUM
     Indication: Colitis ulcerative
     Dosage: 750 MILLIGRAM, AM (75 MILLIGRAM (750 MG, 3 TABS IN
     Route: 048
     Dates: start: 2008, end: 20200115
  18. TRIMETHOPRIM [Concomitant]
     Active Substance: TRIMETHOPRIM
     Indication: Product used for unknown indication
     Dosage: 3 DAYS COURSE
     Route: 065
     Dates: start: 20191204

REACTIONS (10)
  - Cardiac failure [Not Recovered/Not Resolved]
  - Cardiomyopathy [Not Recovered/Not Resolved]
  - Chest discomfort [Unknown]
  - Congestive cardiomyopathy [Not Recovered/Not Resolved]
  - Dyspnoea [Unknown]
  - Effusion [Not Recovered/Not Resolved]
  - Heart rate increased [Not Recovered/Not Resolved]
  - Insomnia [Unknown]
  - Left ventricular dysfunction [Not Recovered/Not Resolved]
  - Nausea [Unknown]

NARRATIVE: CASE EVENT DATE: 20200108
